FAERS Safety Report 6178728-5 (Version None)
Quarter: 2009Q2

REPORT INFORMATION
  Report Type: 
  Country: None (occurrence: None)
  Receive Date: 20090504
  Receipt Date: 20081031
  Transmission Date: 20091009
  Serious: No
  Sender: FDA-Public Use
  Company Number: US-ALEXION-A200800323

PATIENT
  Age: 25 Year
  Sex: Male

DRUGS (2)
  1. SOLIRIS [Suspect]
     Indication: PAROXYSMAL NOCTURNAL HAEMOGLOBINURIA
     Dosage: 900 MG, Q2WK
     Route: 042
  2. VICODIN ES [Concomitant]
     Indication: PAIN
     Dosage: UNK

REACTIONS (3)
  - FATIGUE [None]
  - HAEMOGLOBIN DECREASED [None]
  - PANCYTOPENIA [None]
